FAERS Safety Report 9739100 (Version 2)
Quarter: 2013Q4

REPORT INFORMATION
  Report Type: Spontaneous
  Country: ZA (occurrence: ZA)
  Receive Date: 20131209
  Receipt Date: 20131224
  Transmission Date: 20140711
  Serious: Yes (Other)
  Sender: FDA-Public Use
  Company Number: ZA-DRREDDYS-SAF/SAF/13/0035793

PATIENT
  Age: 63 Year
  Sex: Female
  Weight: 110 kg

DRUGS (3)
  1. OMEZ 20 [Suspect]
     Indication: PRODUCT USED FOR UNKNOWN INDICATION
     Route: 048
     Dates: start: 20131021, end: 20131023
  2. CLOPAMON [Suspect]
     Indication: PRODUCT USED FOR UNKNOWN INDICATION
     Route: 048
     Dates: start: 20131021, end: 20131023
  3. BEVISPAS [Suspect]
     Indication: PRODUCT USED FOR UNKNOWN INDICATION
     Route: 048
     Dates: start: 20131021, end: 20131023

REACTIONS (6)
  - Atrial fibrillation [Not Recovered/Not Resolved]
  - Fatigue [Not Recovered/Not Resolved]
  - Chest discomfort [Unknown]
  - Abdominal distension [Recovered/Resolved]
  - Heart rate irregular [Unknown]
  - Blood pressure increased [Recovered/Resolved]
